FAERS Safety Report 6139220-7 (Version None)
Quarter: 2009Q2

REPORT INFORMATION
  Report Type: 
  Country: None (occurrence: None)
  Receive Date: 20090401
  Receipt Date: 20090322
  Transmission Date: 20091009
  Serious: Yes (Death)
  Sender: FDA-Public Use
  Company Number: PH-PFIZER INC-2009187530

PATIENT

DRUGS (2)
  1. NORVASC [Suspect]
  2. OLMETEC [Suspect]

REACTIONS (1)
  - LUNG DISORDER [None]
